FAERS Safety Report 10178509 (Version 1)
Quarter: 2014Q2

REPORT INFORMATION
  Report Type: Spontaneous
  Country: US (occurrence: US)
  Receive Date: 20140519
  Receipt Date: 20140519
  Transmission Date: 20141212
  Serious: Yes (Other)
  Sender: FDA-Public Use
  Company Number: US-BAYER-2014-073606

PATIENT
  Age: 32 Year
  Sex: Female

DRUGS (3)
  1. YAZ [Suspect]
  2. LORTAB [Concomitant]
     Indication: PAIN
  3. ALDACTONE [SPIRONOLACTONE] [Concomitant]
     Indication: HIRSUTISM

REACTIONS (1)
  - Deep vein thrombosis [None]
